FAERS Safety Report 6847754-2 (Version None)
Quarter: 2010Q3

REPORT INFORMATION
  Report Type: 
  Country: None (occurrence: None)
  Receive Date: 20100716
  Receipt Date: 20100708
  Transmission Date: 20110219
  Serious: Yes (Death, Hospitalization)
  Sender: FDA-Public Use
  Company Number: JP-GENZYME-FABR-1001324

PATIENT
  Sex: Female
  Weight: 40 kg

DRUGS (20)
  1. FABRAZYME [Suspect]
     Indication: FABRY'S DISEASE
     Dosage: 1 MG/KG, Q2W
     Route: 042
     Dates: start: 20100316, end: 20100622
  2. FABRAZYME [Suspect]
     Dosage: 0.437 MG/KG, Q4W
     Route: 042
     Dates: start: 20091112, end: 20100101
  3. FABRAZYME [Suspect]
     Dosage: 1 MG/KG, Q2W
     Route: 042
     Dates: start: 20050125, end: 20091022
  4. LOSARTAN POTASSIUM [Concomitant]
     Indication: RENAL FAILURE
     Dosage: 50 MG, UNK
     Dates: start: 20040831
  5. LOSARTAN POTASSIUM [Concomitant]
     Indication: HYPERTENSION
     Dosage: 50 MG, QD
     Dates: end: 20100622
  6. DIPYRIDAMOLE [Concomitant]
     Indication: RENAL FAILURE
     Dosage: 150 MG, UNK
     Dates: start: 20040831
  7. DIPYRIDAMOLE [Concomitant]
     Indication: FABRY'S DISEASE
     Dosage: 300 MG, BID
     Dates: end: 20100622
  8. ENALAPRIL MALEATE [Concomitant]
     Indication: HYPERTENSION
     Dosage: 5 MG, UNK
     Dates: start: 20100323
  9. RABEPRAZOLE SODIUM [Concomitant]
     Indication: PROPHYLAXIS
     Dosage: 10 MG, QD
     Dates: start: 20100401
  10. FUROSEMIDE [Concomitant]
     Indication: RENAL FAILURE
     Dosage: 20 MG, UNK
     Dates: start: 20100323
  11. ALFACALCIDOL [Concomitant]
     Indication: RENAL FAILURE
     Dosage: 0.25 MG, UNK
     Dates: start: 20100323
  12. CARVEDILOL [Concomitant]
     Indication: FABRY'S DISEASE
     Dosage: 2.5 MG, BID
     Dates: start: 20100216, end: 20100622
  13. WARFARIN POTASSIUM [Concomitant]
     Indication: PRODUCT USED FOR UNKNOWN INDICATION
     Dosage: 1.0 MG, UNK
     Dates: start: 20100216, end: 20100622
  14. CLOSTRIDIUM BUTYRICUM [Concomitant]
     Indication: COLITIS ULCERATIVE
     Dosage: 3.0 G, TID
     Dates: start: 20070403, end: 20100622
  15. DIAZEPAM [Concomitant]
     Indication: COLITIS ULCERATIVE
     Dosage: 4 MG, TID
     Dates: end: 20100622
  16. FERROUS CITRATE [Concomitant]
     Indication: ANAEMIA
     Dosage: 100 MG, UNK
     Dates: start: 20070529, end: 20071211
  17. EPOETIN ALFA [Concomitant]
     Indication: ANAEMIA
     Dosage: UNK
     Dates: start: 20070529, end: 20100622
  18. SPHERICAL ABSORBENT COAL [Concomitant]
     Indication: PRODUCT USED FOR UNKNOWN INDICATION
     Dosage: 4 G, BID
     Dates: start: 20091013, end: 20100622
  19. CALCIUM POLYSTYRENE SULFONATE [Concomitant]
     Indication: PRODUCT USED FOR UNKNOWN INDICATION
     Dosage: 25 G, QD
     Dates: start: 20091013, end: 20100622
  20. APRINDINE HYDROCHLORIDE [Concomitant]
     Indication: FABRY'S DISEASE
     Dosage: 20 MG, BID
     Dates: start: 20100216, end: 20100622

REACTIONS (3)
  - BRAIN STEM HAEMORRHAGE [None]
  - PLEURAL EFFUSION [None]
  - RENAL FAILURE [None]
